FAERS Safety Report 6324902-4 (Version None)
Quarter: 2009Q3

REPORT INFORMATION
  Report Type: 
  Country: None (occurrence: None)
  Receive Date: 20090824
  Receipt Date: 20090619
  Transmission Date: 20100115
  Serious: No
  Sender: FDA-Public Use
  Company Number: US-ABBOTT-09P-163-0580880-00

PATIENT
  Sex: Female
  Weight: 59.02 kg

DRUGS (9)
  1. NIASPAN [Suspect]
     Indication: BLOOD CHOLESTEROL ABNORMAL
     Dosage: EVERY NIGHT
     Dates: start: 20090513, end: 20090613
  2. NIASPAN [Suspect]
     Dosage: EVERY NIGHT
     Dates: start: 20090613
  3. ASPIRIN [Concomitant]
     Indication: DRUG USE FOR UNKNOWN INDICATION
     Route: 048
  4. ZOLOFT [Concomitant]
     Indication: FIBROMYALGIA
     Dosage: LOW DOSE
     Route: 048
  5. AMITRIPTYLINE [Concomitant]
     Indication: FIBROMYALGIA
     Route: 048
  6. PREVACID [Concomitant]
     Indication: DRUG USE FOR UNKNOWN INDICATION
     Route: 048
  7. SIMVASTATIN [Concomitant]
     Indication: DRUG USE FOR UNKNOWN INDICATION
     Route: 048
  8. FISH OIL [Concomitant]
     Indication: DRUG USE FOR UNKNOWN INDICATION
     Dosage: 3 PILLS DAILY
     Route: 048
  9. CALCIUM [Concomitant]
     Indication: DRUG USE FOR UNKNOWN INDICATION
     Dosage: 2 PILLS DAILY
     Route: 048

REACTIONS (4)
  - FEELING HOT [None]
  - FLUSHING [None]
  - NAUSEA [None]
  - PRURITUS [None]
